FAERS Safety Report 20300011 (Version 1)
Quarter: 2022Q1

REPORT INFORMATION
  Report Type: Spontaneous
  Country: US (occurrence: None)
  Receive Date: 20220105
  Receipt Date: 20220105
  Transmission Date: 20220423
  Serious: No
  Sender: FDA-Public Use
  Company Number: None

PATIENT
  Age: 66 Year
  Sex: Female

DRUGS (9)
  1. TOBRAMYCIN [Suspect]
     Active Substance: TOBRAMYCIN
     Indication: Bronchopulmonary aspergillosis allergic
     Dosage: FREQUENCY : TWICE A DAY;?
     Route: 055
     Dates: start: 20210301
  2. ALBUTEROL HFA MDI [Concomitant]
  3. FLUOROURACIL [Concomitant]
     Active Substance: FLUOROURACIL
  4. HIZENTRA SDV [Concomitant]
  5. LEVOTHYROXINE [Concomitant]
     Active Substance: LEVOTHYROXINE
  6. VITAMINS [Concomitant]
     Active Substance: VITAMINS
  7. SODIUM CHLORIDE [Concomitant]
     Active Substance: SODIUM CHLORIDE
  8. DIETARY SUPPLEMENT [Concomitant]
     Active Substance: DIETARY SUPPLEMENT
  9. PROBIOTICS NOS [Concomitant]
     Active Substance: PROBIOTICS NOS

REACTIONS (1)
  - Thyroidectomy [None]

NARRATIVE: CASE EVENT DATE: 20211007
